FAERS Safety Report 5192182-1 (Version None)
Quarter: 2006Q4

REPORT INFORMATION
  Report Type: 
  Country: None (occurrence: None)
  Receive Date: 20061220
  Receipt Date: 20061211
  Transmission Date: 20070319
  Serious: Yes (Hospitalization)
  Sender: FDA-Public Use
  Company Number: HQWYE940213DEC06

PATIENT
  Age: 28 Year
  Sex: Female

DRUGS (2)
  1. OSTELUC (ETODOLAC, CAPSULE) [Suspect]
     Indication: ARTHRITIS
     Dosage: ORAL
     Route: 048
     Dates: start: 20060522
  2. SELBEX (TEPRENONE) [Concomitant]

REACTIONS (6)
  - ALANINE AMINOTRANSFERASE INCREASED [None]
  - ASPARTATE AMINOTRANSFERASE INCREASED [None]
  - BLOOD ALKALINE PHOSPHATASE INCREASED [None]
  - BLOOD PHOSPHORUS INCREASED [None]
  - CHOLANGITIS [None]
  - PYREXIA [None]
